FAERS Safety Report 6557874-8 (Version None)
Quarter: 2010Q1

REPORT INFORMATION
  Report Type: 
  Country: None (occurrence: None)
  Receive Date: 20100128
  Receipt Date: 20100128
  Transmission Date: 20100710
  Serious: Yes (Other)
  Sender: FDA-Public Use
  Company Number: None

PATIENT
  Age: 57 Year
  Sex: Female
  Weight: 54.4316 kg

DRUGS (2)
  1. CELEBREX [Suspect]
     Indication: ARTHRALGIA
     Dosage: 200 MG. DAILY PO
     Route: 048
     Dates: start: 20091223, end: 20100120
  2. CELEBREX [Suspect]
     Indication: JOINT SWELLING
     Dosage: 200 MG. DAILY PO
     Route: 048
     Dates: start: 20091223, end: 20100120

REACTIONS (6)
  - DRUG DISPENSING ERROR [None]
  - DRUG EFFECT DECREASED [None]
  - DRUG INEFFECTIVE [None]
  - EMOTIONAL DISTRESS [None]
  - POOR QUALITY DRUG ADMINISTERED [None]
  - PRODUCT LABEL COUNTERFEIT [None]
